FAERS Safety Report 22586595 (Version 1)
Quarter: 2023Q2

REPORT INFORMATION
  Report Type: Spontaneous
  Country: PK (occurrence: PK)
  Receive Date: 20230611
  Receipt Date: 20230611
  Transmission Date: 20230722
  Serious: Yes (Other)
  Sender: FDA-Public Use
  Company Number: PK-PFIZER INC-PV202300065189

PATIENT
  Age: 12 Year
  Sex: Male
  Weight: 39.5 kg

DRUGS (21)
  1. ENBREL [Suspect]
     Active Substance: ETANERCEPT
     Indication: Juvenile idiopathic arthritis
     Dosage: 25 MG, WEEKLY
     Route: 058
  2. ENBREL [Suspect]
     Active Substance: ETANERCEPT
     Dosage: 25 MG, WEEKLY
     Route: 058
     Dates: start: 20230411
  3. METHOTREXATE [Concomitant]
     Active Substance: METHOTREXATE
     Dosage: 3 TABS EVERY FRIDAY IN MORNING AND AFTERNOON AND ON SATURDAY IN MORNING
  4. FOLIC ACID [Concomitant]
     Active Substance: FOLIC ACID
     Dosage: TUESDAY AFTERNOON
  5. DELTACORTRIL [Concomitant]
     Active Substance: PREDNISOLONE
     Dosage: 1+1 IN MORNING AND EVENING 2 WEEKS THEN 1 AND A HALF TAB DAILY 2 WEEKS, 1 DAILY 1 WEEK, HALF DAILY
  6. VITAMIN D NOS [Concomitant]
     Active Substance: VITAMIN D NOS
     Dosage: ONCE A MONTH
  7. VITAMINS [Concomitant]
     Active Substance: VITAMINS
     Dosage: 10 ML, DAILY
  8. VITAMINS [Concomitant]
     Active Substance: VITAMINS
     Dosage: 1 DOSAGE FORM
  9. VITAMINS [Concomitant]
     Active Substance: VITAMINS
     Dosage: 10 ML, DAILY
  10. DICLOFENAC DIETHYLAMINE [Concomitant]
     Active Substance: DICLOFENAC DIETHYLAMINE
     Indication: Pain
     Dosage: APPLY OVER AFFECTED AREA AND WARM COMPRESS, AS PER NEED
  11. DICLOFENAC DIETHYLAMINE [Concomitant]
     Active Substance: DICLOFENAC DIETHYLAMINE
     Dosage: APPLY OVER AFFECTED AREA AND WARM COMPRESS, AS PER NEED
  12. NAPROXEN [Concomitant]
     Active Substance: NAPROXEN
     Indication: Pain
     Dosage: 1 DAILY AFTER MEAL, AS PER NEED
  13. NAPROXEN [Concomitant]
     Active Substance: NAPROXEN
     Dosage: 1 DAILY AFTER MEAL, AS PER NEED
  14. NUBEROL [Concomitant]
     Indication: Muscle strain
     Dosage: 1+1 IN MORNING AND EVENING, AS PER NEED
  15. NUBEROL [Concomitant]
     Dosage: 1+1 IN MORNING AND EVENING, AS PER NEED
  16. OMEPRAZOLE [Concomitant]
     Active Substance: OMEPRAZOLE
     Dosage: 1 TAB HALF AN HOUR BEFORE BREAKFAST
  17. DELTACORTRIL [Concomitant]
     Active Substance: PREDNISOLONE
     Dosage: 1+1 IN MORNING AND EVENING 2 WEEKS THEN 1 AND A HALF TAB DAILY 2 WEEKS, 1 DAILY 1 WEEK, HALF DAILY
  18. CALCIUM+VITAMIN C [Concomitant]
     Dosage: 1 TAB DAILY EVENING
  19. VITAMINS [Concomitant]
     Active Substance: VITAMINS
     Dosage: 1 DAILY AFTER BREAKFAST
  20. Risek [Concomitant]
     Dosage: HALF AN HOUR BEFORE BREAKFAST
  21. CAD3 [Concomitant]
     Dosage: 1 DF, DAILY

REACTIONS (7)
  - Eosinophilia myalgia syndrome [Recovering/Resolving]
  - Haemoglobin decreased [Unknown]
  - Off label use [Unknown]
  - Joint swelling [Unknown]
  - Arthralgia [Recovering/Resolving]
  - Headache [Unknown]
  - Injection site rash [Unknown]

NARRATIVE: CASE EVENT DATE: 20221001
